FAERS Safety Report 18750013 (Version 1)
Quarter: 2021Q1

REPORT INFORMATION
  Report Type: Report from Study
  Country: None (occurrence: US)
  Receive Date: 20210118
  Receipt Date: 20210118
  Transmission Date: 20210419
  Serious: Yes (Hospitalization, Other)
  Sender: FDA-Public Use
  Company Number: US-ABBVIE-21K-163-3729621-00

PATIENT
  Age: 61 Year
  Sex: Female

DRUGS (2)
  1. IMBRUVICA [Suspect]
     Active Substance: IBRUTINIB
     Route: 048
     Dates: start: 202001
  2. IMBRUVICA [Suspect]
     Active Substance: IBRUTINIB
     Indication: CHRONIC LYMPHOCYTIC LEUKAEMIA
     Route: 048
     Dates: start: 202001

REACTIONS (9)
  - Blood count abnormal [Not Recovered/Not Resolved]
  - Brain operation [Recovered/Resolved]
  - Nervous system disorder [Unknown]
  - Asthenia [Not Recovered/Not Resolved]
  - Clostridium difficile infection [Recovered/Resolved]
  - Deafness [Unknown]
  - Skull fractured base [Recovered/Resolved]
  - Thrombosis [Unknown]
  - Pain [Unknown]

NARRATIVE: CASE EVENT DATE: 2020
